FAERS Safety Report 14986222 (Version 1)
Quarter: 2018Q2

REPORT INFORMATION
  Report Type: Spontaneous
  Country: US (occurrence: US)
  Receive Date: 20180607
  Receipt Date: 20180607
  Transmission Date: 20180711
  Serious: Yes (Hospitalization)
  Sender: FDA-Public Use
  Company Number: US-ACTELION-A-NJ2018-173285

PATIENT
  Age: 49 Year
  Sex: Male

DRUGS (4)
  1. SEROQUEL [Suspect]
     Active Substance: QUETIAPINE FUMARATE
     Indication: MENTAL DISORDER
     Route: 065
  2. PROTONIX [Concomitant]
     Active Substance: PANTOPRAZOLE SODIUM
  3. VELETRI [Suspect]
     Active Substance: EPOPROSTENOL
     Indication: PRODUCT USED FOR UNKNOWN INDICATION
     Dosage: UNK
     Route: 042
     Dates: end: 20180501
  4. RIFAXIMIN. [Concomitant]
     Active Substance: RIFAXIMIN

REACTIONS (14)
  - Anaemia [Unknown]
  - Acute kidney injury [Unknown]
  - Dizziness [Unknown]
  - Treatment noncompliance [Unknown]
  - Agitation [Unknown]
  - Unevaluable event [Unknown]
  - Pulmonary hypertension [Unknown]
  - Right ventricular failure [Unknown]
  - Bipolar disorder [Unknown]
  - Impulsive behaviour [Unknown]
  - Mental disorder [Unknown]
  - Anxiety [Unknown]
  - Hepatic cirrhosis [Unknown]
  - Pancytopenia [Unknown]

NARRATIVE: CASE EVENT DATE: 20180501
